FAERS Safety Report 7551060-0 (Version None)
Quarter: 2011Q2

REPORT INFORMATION
  Report Type: 
  Country: None (occurrence: None)
  Receive Date: 20110616
  Receipt Date: 20110607
  Transmission Date: 20111010
  Serious: Yes (Hospitalization, Other)
  Sender: FDA-Public Use
  Company Number: CA-BRISTOL-MYERS SQUIBB COMPANY-15817794

PATIENT
  Age: 59 Year
  Sex: Male

DRUGS (5)
  1. ABATACEPT [Suspect]
     Route: 058
  2. FOLIC ACID [Concomitant]
     Dates: start: 20030130
  3. RAMIPRIL [Concomitant]
     Dates: start: 20051110
  4. GLICLAZIDE [Concomitant]
     Dates: start: 20070214
  5. METHOTREXATE [Suspect]
     Dates: start: 20081115

REACTIONS (3)
  - PNEUMONIA [None]
  - DEHYDRATION [None]
  - RENAL FAILURE ACUTE [None]
